FAERS Safety Report 7329030-7 (Version None)
Quarter: 2011Q1

REPORT INFORMATION
  Report Type: 
  Country: None (occurrence: None)
  Receive Date: 20110225
  Receipt Date: 20110225
  Transmission Date: 20110831
  Serious: Yes (Other)
  Sender: FDA-Public Use
  Company Number: None

PATIENT
  Sex: Female
  Weight: 65.7716 kg

DRUGS (2)
  1. ARMOUR THYROID 0.5 GRAIN FOREST PHARMACEUTICALS, [Suspect]
     Indication: HYPOTHYROIDISM
     Dosage: 0.5 GRAIN -30MG- QD PO
     Route: 048
     Dates: start: 20101101, end: 20110225
  2. ARMOUR THYROID 0.5 GRAIN FOREST PHARMACEUTICALS, [Suspect]
     Indication: HORMONE LEVEL ABNORMAL
     Dosage: 0.5 GRAIN -30MG- QD PO
     Route: 048
     Dates: start: 20101101, end: 20110225

REACTIONS (15)
  - ONYCHOCLASIS [None]
  - EXTRASYSTOLES [None]
  - SKIN EXFOLIATION [None]
  - NAIL DISORDER [None]
  - DRY SKIN [None]
  - HAIR TEXTURE ABNORMAL [None]
  - CHILLS [None]
  - PRODUCT SUBSTITUTION ISSUE [None]
  - CONSTIPATION [None]
  - WEIGHT INCREASED [None]
  - FEELING COLD [None]
  - PALPITATIONS [None]
  - ALOPECIA [None]
  - PRURITUS [None]
  - FATIGUE [None]
